FAERS Safety Report 18600627 (Version 1)
Quarter: 2020Q4

REPORT INFORMATION
  Report Type: Spontaneous
  Country: US (occurrence: US)
  Receive Date: 20201210
  Receipt Date: 20201210
  Transmission Date: 20210114
  Serious: Yes (Other)
  Sender: FDA-Public Use
  Company Number: None

PATIENT
  Age: 61 Year
  Sex: Female
  Weight: 64.35 kg

DRUGS (1)
  1. GENERIC LEVOTHYROXINE SOLD BY WALMART (SANDOZ) [Suspect]
     Active Substance: LEVOTHYROXINE
     Indication: AUTOIMMUNE THYROIDITIS
     Dates: start: 20201108, end: 20201210

REACTIONS (8)
  - Dizziness [None]
  - Product formulation issue [None]
  - Fatigue [None]
  - Lymphadenopathy [None]
  - Feeling abnormal [None]
  - Gait disturbance [None]
  - Gastric disorder [None]
  - Headache [None]

NARRATIVE: CASE EVENT DATE: 20201108
